FAERS Safety Report 4578480-0 (Version None)
Quarter: 2005Q1

REPORT INFORMATION
  Report Type: 
  Country: None (occurrence: None)
  Receive Date: 20050202
  Receipt Date: 20050202
  Transmission Date: 20050727
  Serious: Yes (Hospitalization)
  Sender: FDA-Public Use
  Company Number: None

PATIENT
  Age: 75 Year
  Sex: Male

DRUGS (7)
  1. VORICONAZOLE [Suspect]
     Indication: PNEUMONIA ASPERGILLUS
     Dosage: 480 MG IV Q 12 H
     Route: 042
     Dates: start: 20040430, end: 20040519
  2. VORICONAZOLE [Suspect]
     Dosage: 200 MG PO BID
     Route: 048
     Dates: start: 20040519, end: 20040531
  3. LISINOPRIL [Concomitant]
  4. ATENOLOL [Concomitant]
  5. VIOXX [Concomitant]
  6. SERTRALINE HCL [Concomitant]
  7. FLOMAX [Concomitant]

REACTIONS (2)
  - PNEUMONIA FUNGAL [None]
  - SKIN EXFOLIATION [None]
